FAERS Safety Report 9501969 (Version 1)
Quarter: 2013Q3

REPORT INFORMATION
  Report Type: Spontaneous
  Country: US (occurrence: US)
  Receive Date: 20130905
  Receipt Date: 20130905
  Transmission Date: 20140515
  Serious: Yes (Congenital Anomaly, Other)
  Sender: FDA-Public Use
  Company Number: US-ABBOTT-13P-163-1139782-00

PATIENT
  Sex: 0

DRUGS (1)
  1. DEPAKOTE [Suspect]
     Indication: MATERNAL EXPOSURE TIMING UNSPECIFIED
     Route: 064

REACTIONS (15)
  - Multiple injuries [Unknown]
  - Spina bifida [Unknown]
  - Congenital cardiovascular anomaly [Unknown]
  - Pain [Unknown]
  - Activities of daily living impaired [Unknown]
  - Pain [Unknown]
  - Tension [Unknown]
  - Anhedonia [Unknown]
  - Loss of employment [Unknown]
  - Foetal exposure during pregnancy [Unknown]
  - Deformity [Unknown]
  - Emotional distress [Unknown]
  - Social problem [Unknown]
  - Social problem [Unknown]
  - Physical disability [Unknown]
